FAERS Safety Report 4334061-5 (Version None)
Quarter: 2004Q1

REPORT INFORMATION
  Report Type: 
  Country: None (occurrence: None)
  Receive Date: 20040329
  Receipt Date: 20031216
  Transmission Date: 20041129
  Serious: No
  Sender: FDA-Public Use
  Company Number: 03P-163-0244980-00

PATIENT
  Age: 81 Year
  Sex: Female
  Weight: 58.0604 kg

DRUGS (15)
  1. HUMIRA [Suspect]
     Indication: RHEUMATOID ARTHRITIS
     Dosage: 40 MG, 1 IN 2 WK, SUBCUTANEOUS
     Route: 058
     Dates: start: 20030627
  2. METHOTREXATE [Concomitant]
  3. CELECOXIB [Concomitant]
  4. FOLIC ACID [Concomitant]
  5. RALOXIFENE HCL [Concomitant]
  6. CALCIUM CARBONATE [Concomitant]
  7. RAMIPRIL [Concomitant]
  8. ICAPS [Concomitant]
  9. METOPROLOL SUCCINATE [Concomitant]
  10. ASPIRIN [Concomitant]
  11. ATORVASTATIN [Concomitant]
  12. POTASSIUM CHLORIDE [Concomitant]
  13. TORSEMIDE [Concomitant]
  14. RABEPRAZOLE SODIUM [Concomitant]
  15. TOCOPHEROL CONCENTRATE CAP [Concomitant]

REACTIONS (2)
  - PRURITUS [None]
  - RASH [None]
